FAERS Safety Report 23405375 (Version 1)
Quarter: 2024Q1

REPORT INFORMATION
  Report Type: Spontaneous
  Country: US (occurrence: None)
  Receive Date: 20240116
  Receipt Date: 20240116
  Transmission Date: 20240410
  Serious: No
  Sender: FDA-Public Use
  Company Number: 2024A007687

PATIENT
  Age: 959 Month
  Sex: Female
  Weight: 86.2 kg

DRUGS (2)
  1. FASLODEX [Suspect]
     Active Substance: FULVESTRANT
     Indication: Breast cancer
     Dosage: UNKNOWN
     Dates: start: 20211001
  2. ELIQUIS [Suspect]
     Active Substance: APIXABAN
     Indication: Atrial fibrillation
     Route: 048
     Dates: start: 201908

REACTIONS (6)
  - Rectal haemorrhage [Recovering/Resolving]
  - Contusion [Recovering/Resolving]
  - Anaemia [Unknown]
  - Neuropathy peripheral [Unknown]
  - Myalgia [Unknown]
  - Arthralgia [Unknown]

NARRATIVE: CASE EVENT DATE: 20231201
